FAERS Safety Report 4877108-X (Version None)
Quarter: 2005Q4

REPORT INFORMATION
  Report Type: 
  Country: None (occurrence: None)
  Receive Date: 20051206
  Receipt Date: 20050816
  Transmission Date: 20060501
  Serious: No
  Sender: FDA-Public Use
  Company Number: USA0508105875

PATIENT
  Age: 61 Year
  Sex: Female
  Weight: 115 kg

DRUGS (5)
  1. CYMBALTA [Suspect]
     Indication: FIBROMYALGIA
     Dosage: 30 MG DAY
  2. LASIX (FUROSEMIDE0 [Concomitant]
  3. ULTRAM [Concomitant]
  4. HYDROCHLOROTHIAZIDE W/ TRIAMTERENE [Concomitant]
  5. NEXIUM [Concomitant]

REACTIONS (3)
  - AGGRESSION [None]
  - AGITATION [None]
  - CONFUSIONAL STATE [None]
